FAERS Safety Report 11948607 (Version 1)
Quarter: 2016Q1

REPORT INFORMATION
  Report Type: Spontaneous
  Country: US (occurrence: US)
  Receive Date: 20160125
  Receipt Date: 20160125
  Transmission Date: 20160526
  Serious: No
  Sender: FDA-Public Use
  Company Number: US-APOTEX-2015AP013756

PATIENT
  Age: 88 Year
  Sex: Female

DRUGS (8)
  1. FLUTICASONE PROPIONATE. [Concomitant]
     Active Substance: FLUTICASONE PROPIONATE
     Indication: SEASONAL ALLERGY
     Route: 065
  2. FEXOFENADINE [Concomitant]
     Active Substance: FEXOFENADINE\FEXOFENADINE HYDROCHLORIDE
     Indication: SEASONAL ALLERGY
     Route: 065
  3. AMLODIPINE [Concomitant]
     Active Substance: AMLODIPINE BESYLATE
     Indication: HYPERTENSION
     Route: 065
  4. LOSARTAN. [Concomitant]
     Active Substance: LOSARTAN
     Indication: HYPERTENSION
     Route: 065
  5. OLOPATADINE [Concomitant]
     Active Substance: OLOPATADINE
     Indication: SEASONAL ALLERGY
     Route: 047
  6. IMIQUIMOD. [Suspect]
     Active Substance: IMIQUIMOD
     Indication: ACTINIC CHEILITIS
     Dosage: APPLIED TWICE A WEEK
     Route: 061
     Dates: start: 20131030
  7. MOMETASONE [Concomitant]
     Active Substance: MOMETASONE
     Indication: SEASONAL ALLERGY
     Route: 065
  8. TRIAMTERENE. [Concomitant]
     Active Substance: TRIAMTERENE
     Indication: HYPERTENSION
     Route: 065

REACTIONS (2)
  - Oral candidiasis [Recovered/Resolved]
  - Lichenification [Recovered/Resolved]

NARRATIVE: CASE EVENT DATE: 20131122
